FAERS Safety Report 4949618-8 (Version None)
Quarter: 2006Q1

REPORT INFORMATION
  Report Type: 
  Country: None (occurrence: None)
  Receive Date: 20060316
  Receipt Date: 20060308
  Transmission Date: 20060701
  Serious: Yes (Hospitalization, Other)
  Sender: FDA-Public Use
  Company Number: HQWYE089007MAY03

PATIENT
  Age: 46 Year
  Sex: Male
  Weight: 98.97 kg

DRUGS (10)
  1. MYLOTARG [Suspect]
     Indication: ACUTE MYELOID LEUKAEMIA
     Dosage: SEE IMAGE
     Route: 042
     Dates: start: 20030422, end: 20030422
  2. MYLOTARG [Suspect]
     Indication: ACUTE MYELOID LEUKAEMIA
     Dosage: SEE IMAGE
     Route: 042
     Dates: start: 20030506, end: 20030506
  3. ACYCLOVIR [Concomitant]
  4. LEXAPRO [Concomitant]
  5. DILAUDID [Concomitant]
  6. PREVACID [Concomitant]
  7. VALIUM [Concomitant]
  8. SPORANOX [Concomitant]
  9. CIPROFLOXACIN HCL [Concomitant]
  10. TEQUIN [Concomitant]

REACTIONS (7)
  - DIZZINESS POSTURAL [None]
  - FATIGUE [None]
  - FEBRILE NEUTROPENIA [None]
  - INFUSION RELATED REACTION [None]
  - NAUSEA [None]
  - PALLOR [None]
  - PANCYTOPENIA [None]
